FAERS Safety Report 21347927 (Version 3)
Quarter: 2022Q4

REPORT INFORMATION
  Report Type: Report from Study
  Country: EG (occurrence: EG)
  Receive Date: 20220919
  Receipt Date: 20221222
  Transmission Date: 20230113
  Serious: Yes (Other)
  Sender: FDA-Public Use
  Company Number: EG-BAYER-2022A116965

PATIENT
  Sex: Male

DRUGS (7)
  1. EYLEA [Suspect]
     Active Substance: AFLIBERCEPT
     Indication: Haemorrhage
     Dosage: UNK, LEFT AND RIGHT EYE, SOLUTION FOR INJECTION
     Route: 031
     Dates: start: 20220731, end: 20220731
  2. EYLEA [Suspect]
     Active Substance: AFLIBERCEPT
     Dosage: UNK, SOLUTION FOR INJECTION
  3. RAMIPRIL [Concomitant]
     Active Substance: RAMIPRIL
     Indication: Hypertension
     Dosage: 1.25 MG, QD
     Dates: start: 2020
  4. ASPIRIN [Concomitant]
     Active Substance: ASPIRIN
     Indication: Product used for unknown indication
     Dosage: 1 DF, QD
  5. CRESTOR [Concomitant]
     Active Substance: ROSUVASTATIN CALCIUM
     Indication: Hypercholesterolaemia
     Dosage: 20 MG, QD
     Dates: start: 2020
  6. JUSPRIN [Concomitant]
     Indication: Product used for unknown indication
  7. PLAVIX [Concomitant]
     Active Substance: CLOPIDOGREL BISULFATE
     Indication: Product used for unknown indication

REACTIONS (16)
  - Vitreous haemorrhage [Not Recovered/Not Resolved]
  - Eye laser surgery [Recovering/Resolving]
  - Eye laser surgery [Recovering/Resolving]
  - Cataract [Recovering/Resolving]
  - Cataract [Not Recovered/Not Resolved]
  - Off label use [Unknown]
  - Drug ineffective [Not Recovered/Not Resolved]
  - Retinal disorder [Not Recovered/Not Resolved]
  - Procedural headache [Recovered/Resolved]
  - Disturbance in attention [Recovering/Resolving]
  - Visual impairment [Recovering/Resolving]
  - Visual impairment [Not Recovered/Not Resolved]
  - Post procedural discomfort [Recovering/Resolving]
  - Vision blurred [Not Recovered/Not Resolved]
  - Vision blurred [Not Recovered/Not Resolved]
  - Eye pain [Recovered/Resolved]

NARRATIVE: CASE EVENT DATE: 20220731
